FAERS Safety Report 17906206 (Version 1)
Quarter: 2020Q2

REPORT INFORMATION
  Report Type: Spontaneous
  Country: US (occurrence: US)
  Receive Date: 20200616
  Receipt Date: 20200616
  Transmission Date: 20200714
  Serious: No
  Sender: FDA-Public Use
  Company Number: US-ROCHE-2354232

PATIENT
  Sex: Female

DRUGS (1)
  1. ACTEMRA [Suspect]
     Active Substance: TOCILIZUMAB
     Indication: PRODUCT USED FOR UNKNOWN INDICATION
     Route: 058
     Dates: start: 20170811

REACTIONS (4)
  - Hyperhidrosis [Recovered/Resolved]
  - Sensitive skin [Recovered/Resolved]
  - Depression [Recovered/Resolved]
  - Insomnia [Not Recovered/Not Resolved]
